FAERS Safety Report 17078412 (Version 4)
Quarter: 2020Q3

REPORT INFORMATION
  Report Type: Report from Study
  Country: US (occurrence: US)
  Receive Date: 20191126
  Receipt Date: 20200817
  Transmission Date: 20201102
  Serious: No
  Sender: FDA-Public Use
  Company Number: US-IPSEN BIOPHARMACEUTICALS, INC.-2018-06910

PATIENT
  Age: 12 Year
  Sex: Female
  Weight: 63.8 kg

DRUGS (16)
  1. DYSPORT [Suspect]
     Active Substance: ABOBOTULINUMTOXINA
     Indication: MUSCLE SPASTICITY
     Dosage: 800 UNITS (100 UNITS EACH INTO LEFT AND RIGHT SIDE OF HAMSTRING)
     Route: 030
     Dates: start: 20180410, end: 20180410
  2. MYCOSTATIN [Concomitant]
     Active Substance: NYSTATIN
     Indication: TINEA PEDIS
     Dosage: 1 LOCAL APPLICATION
     Route: 061
     Dates: start: 20180410, end: 20180420
  3. FENTANYL. [Concomitant]
     Active Substance: FENTANYL
     Indication: PAIN MANAGEMENT
     Route: 042
     Dates: start: 20190429, end: 20190429
  4. DYSPORT [Suspect]
     Active Substance: ABOBOTULINUMTOXINA
     Indication: OFF LABEL USE
  5. DIFLUCAN [Concomitant]
     Active Substance: FLUCONAZOLE
     Indication: TINEA PEDIS
     Dates: start: 20180410, end: 20180420
  6. MORPHINE [Concomitant]
     Active Substance: MORPHINE
     Indication: PAIN MANAGEMENT
     Route: 042
     Dates: start: 20190429, end: 20190429
  7. LIDOCAINE. [Concomitant]
     Active Substance: LIDOCAINE
     Indication: PAIN MANAGEMENT
     Route: 042
     Dates: start: 20190429, end: 20190429
  8. BACLOFEN. [Concomitant]
     Active Substance: BACLOFEN
     Indication: MUSCLE SPASTICITY
     Dates: start: 2007
  9. DEXAMETHASONE. [Concomitant]
     Active Substance: DEXAMETHASONE
     Indication: PAIN MANAGEMENT
     Dosage: ONCE
     Route: 042
     Dates: start: 20190429, end: 20190429
  10. PRECEDEX [Concomitant]
     Active Substance: DEXMEDETOMIDINE HYDROCHLORIDE
     Indication: SEDATION
     Route: 042
     Dates: start: 20190429, end: 20190429
  11. OXYCODONE [Concomitant]
     Active Substance: OXYCODONE
     Indication: PROCEDURAL PAIN
     Dosage: ONCE
     Dates: start: 20190429, end: 20190429
  12. OXYCODONE [Concomitant]
     Active Substance: OXYCODONE
     Indication: PAIN MANAGEMENT
     Dosage: PRN?AS NEEDED
     Dates: start: 20190429, end: 20190506
  13. CEFAZOLIN [Concomitant]
     Active Substance: CEFAZOLIN
     Indication: INFECTION PROPHYLAXIS
     Route: 042
     Dates: start: 20190429, end: 20190429
  14. DYSPORT [Suspect]
     Active Substance: ABOBOTULINUMTOXINA
     Indication: MUSCLE SPASTICITY
  15. PROPOFOL. [Concomitant]
     Active Substance: PROPOFOL
     Indication: SEDATION
     Route: 042
     Dates: start: 20190429, end: 20190429
  16. ONDANSETRON [Concomitant]
     Active Substance: ONDANSETRON
     Indication: PROPHYLAXIS OF NAUSEA AND VOMITING
     Route: 042
     Dates: start: 20190429, end: 20190429

REACTIONS (2)
  - Gait spastic [Recovered/Resolved]
  - Off label use [Unknown]

NARRATIVE: CASE EVENT DATE: 20190429
